FAERS Safety Report 21822983 (Version 1)
Quarter: 2023Q1

REPORT INFORMATION
  Report Type: Spontaneous
  Country: US (occurrence: US)
  Receive Date: 20230105
  Receipt Date: 20230105
  Transmission Date: 20230418
  Serious: No
  Sender: FDA-Public Use
  Company Number: US-AMNEAL PHARMACEUTICALS-2022-AMRX-00427

PATIENT
  Age: 46 Year
  Sex: Female
  Weight: 59 kg

DRUGS (7)
  1. ACTIVELLA [Suspect]
     Active Substance: ESTRADIOL\NORETHINDRONE ACETATE
     Indication: Uterine leiomyoma
     Dosage: 1 DOSAGE FORM, 1X/DAY
     Route: 048
     Dates: start: 20190104, end: 20191120
  2. ACTIVELLA [Suspect]
     Active Substance: ESTRADIOL\NORETHINDRONE ACETATE
     Dosage: 1 DOSAGE FORM, 1X/DAY
     Route: 048
     Dates: start: 20191121, end: 20211215
  3. ELAGOLIX [Suspect]
     Active Substance: ELAGOLIX
     Indication: Uterine leiomyoma
     Dosage: 300 MILLIGRAM, 1X/DAY
     Route: 048
     Dates: start: 20190104, end: 20191120
  4. ELAGOLIX [Suspect]
     Active Substance: ELAGOLIX
     Dosage: 300 MILLIGRAM, 1X/DAY
     Route: 048
     Dates: start: 20191121, end: 20211215
  5. VITAMIN D NOS [Concomitant]
     Active Substance: VITAMIN D NOS
     Indication: Vitamin D deficiency
     Dosage: 2000 INTERNATIONAL UNIT, 1 /DAY
     Route: 048
     Dates: start: 20180905
  6. LEVOTHYROXINE [Concomitant]
     Active Substance: LEVOTHYROXINE
     Indication: Hypothyroidism
     Dosage: 50 MICROGRAM, 1 /DAY
     Route: 048
     Dates: start: 2016
  7. SIMVASTATIN [Concomitant]
     Active Substance: SIMVASTATIN
     Indication: Hypercholesterolaemia
     Dosage: 10 MILLIGRAM, 1X/DAY
     Route: 048
     Dates: start: 2016

REACTIONS (1)
  - Bone density decreased [Not Recovered/Not Resolved]

NARRATIVE: CASE EVENT DATE: 20210813
